FAERS Safety Report 7390721-3 (Version None)
Quarter: 2011Q2

REPORT INFORMATION
  Report Type: 
  Country: None (occurrence: None)
  Receive Date: 20110404
  Receipt Date: 20110323
  Transmission Date: 20111010
  Serious: No
  Sender: FDA-Public Use
  Company Number: US-BIOGENIDEC-2011BI011261

PATIENT
  Age: 53 Year
  Sex: Female

DRUGS (1)
  1. TYSABRI [Suspect]
     Indication: MULTIPLE SCLEROSIS
     Route: 042
     Dates: start: 20071227

REACTIONS (8)
  - VISUAL IMPAIRMENT [None]
  - LOSS OF CONTROL OF LEGS [None]
  - ASTHENIA [None]
  - FATIGUE [None]
  - SPEECH DISORDER [None]
  - CONSTIPATION [None]
  - MOBILITY DECREASED [None]
  - CONFUSIONAL STATE [None]
